FAERS Safety Report 12802076 (Version 4)
Quarter: 2017Q1

REPORT INFORMATION
  Report Type: Report from Study
  Country: CA (occurrence: CA)
  Receive Date: 20161003
  Receipt Date: 20170301
  Transmission Date: 20170428
  Serious: Yes (Other)
  Sender: FDA-Public Use
  Company Number: CA-JAZZ-2016-CA-012706

PATIENT
  Age: 80 Year
  Sex: Female
  Weight: 53.97 kg

DRUGS (11)
  1. XYREM [Suspect]
     Active Substance: SODIUM OXYBATE
     Dosage: 6 G, BID
     Route: 048
     Dates: start: 20090513
  2. XYREM [Suspect]
     Active Substance: SODIUM OXYBATE
     Dosage: 4.5 G, TID
     Route: 048
     Dates: start: 20141126
  3. XYREM [Suspect]
     Active Substance: SODIUM OXYBATE
     Dosage: 3 G, TID
     Route: 048
     Dates: start: 20160704
  4. RITALIN [Concomitant]
     Active Substance: METHYLPHENIDATE HYDROCHLORIDE
     Indication: HYPERTENSION
     Dosage: UNK
  5. XYREM [Suspect]
     Active Substance: SODIUM OXYBATE
     Dosage: 4.5 G, BID
     Route: 048
     Dates: start: 20131023
  6. XYREM [Suspect]
     Active Substance: SODIUM OXYBATE
     Dosage: 4.5 G, TID
     Route: 048
     Dates: start: 20160620
  7. XYREM [Suspect]
     Active Substance: SODIUM OXYBATE
     Dosage: 2.25 G - 5.0 G TOTAL NIGHTLY DOSE
     Route: 048
     Dates: start: 20130802
  8. XYREM [Suspect]
     Active Substance: SODIUM OXYBATE
     Dosage: DOSE DECREASED
     Route: 048
     Dates: start: 20160525, end: 20160629
  9. XYREM [Suspect]
     Active Substance: SODIUM OXYBATE
     Dosage: 4.5 G - 6.75 G TOTAL NIGHTLY DOSE
     Route: 048
     Dates: start: 20130605
  10. MORPHINE [Concomitant]
     Active Substance: MORPHINE
     Indication: PRODUCT USED FOR UNKNOWN INDICATION
     Dosage: 24 MG TWICE DAILY AND 4 MG AS NEEDED
  11. XYREM [Suspect]
     Active Substance: SODIUM OXYBATE
     Indication: CATAPLEXY
     Dosage: 4.5 G, TID
     Route: 048
     Dates: start: 20070817

REACTIONS (10)
  - Inappropriate schedule of drug administration [Unknown]
  - Weight decreased [Unknown]
  - Activities of daily living impaired [Unknown]
  - Somnolence [Unknown]
  - Scoliosis [Unknown]
  - Body height decreased [Unknown]
  - Treatment noncompliance [Unknown]
  - Overdose [Unknown]
  - Nausea [Unknown]
  - Incorrect dose administered [Unknown]

NARRATIVE: CASE EVENT DATE: 20170214
